FAERS Safety Report 5619968-0 (Version None)
Quarter: 2008Q1

REPORT INFORMATION
  Report Type: 
  Country: None (occurrence: None)
  Receive Date: 20080208
  Receipt Date: 20080130
  Transmission Date: 20080703
  Serious: Yes (Death, Hospitalization)
  Sender: FDA-Public Use
  Company Number: DE-JNJFOC-20080107668

PATIENT
  Age: 8 Decade
  Sex: Male

DRUGS (4)
  1. REMICADE [Suspect]
     Route: 042
  2. REMICADE [Suspect]
     Indication: RHEUMATOID ARTHRITIS
     Route: 042
  3. ADALIMUMAB [Concomitant]
  4. ADALIMUMAB [Concomitant]
     Indication: RHEUMATOID ARTHRITIS

REACTIONS (1)
  - AORTIC VALVE INCOMPETENCE [None]
